FAERS Safety Report 8784397 (Version 1)
Quarter: 2012Q4

REPORT INFORMATION
  Report Type: 
  Country: US (occurrence: US)
  Receive Date: 20120914
  Receipt Date: 20120914
  Transmission Date: 20130627
  Serious: No
  Sender: FDA-Public Use
  Company Number: US-PFIZER INC-2012224617

PATIENT
  Age: 85 Year
  Sex: Female
  Weight: 62.59 kg

DRUGS (6)
  1. CELEBREX [Suspect]
     Indication: PAIN
     Dosage: 200 mg,UNK
     Dates: start: 20120821
  2. CELEBREX [Suspect]
     Indication: LUMBAR SPINAL STENOSIS
  3. CELEBREX [Suspect]
     Indication: OSTEOARTHRITIS
  4. BABY ASPIRIN [Concomitant]
     Indication: MYOCARDIAL INFARCTION
     Dosage: Before break fast, 200 mg, daily
  5. LEVOXYL [Concomitant]
     Indication: HYPERTHYROIDISM
     Dosage: After break fast, daily
  6. LIPITOR [Concomitant]
     Indication: BLOOD CHOLESTEROL INCREASED
     Dosage: UNK

REACTIONS (3)
  - Pain [Not Recovered/Not Resolved]
  - Insomnia [Not Recovered/Not Resolved]
  - Fatigue [Not Recovered/Not Resolved]
